FAERS Safety Report 4499781-0 (Version None)
Quarter: 2004Q4

REPORT INFORMATION
  Report Type: 
  Country: None (occurrence: None)
  Receive Date: 20041112
  Receipt Date: 20041020
  Transmission Date: 20050328
  Serious: Yes (Other)
  Sender: FDA-Public Use
  Company Number: PHNU2004DE03581

PATIENT
  Age: 74 Year
  Sex: Female
  Weight: 61 kg

DRUGS (19)
  1. LOCOL [Suspect]
     Indication: HYPERCHOLESTEROLAEMIA
     Dosage: 80 MG, QD
     Route: 048
     Dates: start: 20041011, end: 20041017
  2. CARBIMAZOLE [Concomitant]
     Indication: GOITRE
     Dosage: 40 MG, QD
  3. PANTOZOL [Concomitant]
     Dosage: 40 MG, QD
  4. ACETYLSALICYLIC ACID [Concomitant]
     Dosage: 100 MG, QD
  5. CLEXANE [Concomitant]
     Dosage: 40 MG, BID
     Route: 058
  6. INSUMAN COMB 25 [Concomitant]
     Dosage: 22 IU, QD
  7. EUNERPAN [Concomitant]
     Indication: ANXIETY
     Dosage: 25 MG, QD
     Dates: start: 20041010, end: 20041014
  8. DELIX PLUS [Concomitant]
     Dosage: 5 MG, QD
     Route: 048
     Dates: end: 20041010
  9. DELIX [Concomitant]
     Dosage: 5 MG, QD
     Dates: start: 20041011
  10. BELOC ZOK [Concomitant]
     Dosage: 1 DF, BID
     Dates: end: 20041010
  11. BELOC ZOK [Concomitant]
     Dosage: .5 DF, BID
     Dates: start: 20041011
  12. ATOSIL [Concomitant]
     Dosage: 20 DF, ONCE/SINGLE
     Dates: start: 20041014, end: 20041014
  13. ZOLPIDEM TARTRATE [Concomitant]
     Dosage: 10 MG, QD
     Dates: start: 20041007, end: 20041010
  14. DIAZEPAM [Concomitant]
     Dosage: 2/2/5MG/DAY
     Dates: start: 20041015, end: 20041017
  15. DIPIPERON                               /GFR/ [Concomitant]
     Indication: DELIRIUM
     Dosage: 5 ML, TID
     Dates: start: 20041014, end: 20041016
  16. HALDOL [Concomitant]
     Indication: DELIRIUM
     Dosage: 10/10/20DF/DAY
     Dates: start: 20041014, end: 20041018
  17. REMERGIL [Concomitant]
     Dosage: 15 MG, QD
     Dates: start: 20041018, end: 20041018
  18. RISPERDAL [Concomitant]
     Dosage: 1 MG, QD
     Dates: start: 20041019, end: 20041019
  19. ZOLDEM [Concomitant]
     Dosage: 10 MG, QD
     Dates: start: 20041017, end: 20041017

REACTIONS (7)
  - AGGRESSION [None]
  - ANXIETY [None]
  - CEREBRAL ATHEROSCLEROSIS [None]
  - CONFUSIONAL STATE [None]
  - DELIRIUM [None]
  - HALLUCINATION [None]
  - RESTLESSNESS [None]
